FAERS Safety Report 20945629 (Version 7)
Quarter: 2022Q3

REPORT INFORMATION
  Report Type: Spontaneous
  Country: US (occurrence: US)
  Receive Date: 20220610
  Receipt Date: 20220920
  Transmission Date: 20221027
  Serious: No
  Sender: FDA-Public Use
  Company Number: US-PFIZER INC-202200767356

PATIENT
  Age: 69 Year
  Sex: Female

DRUGS (3)
  1. EUCRISA [Suspect]
     Active Substance: CRISABOROLE
     Indication: Dermatitis atopic
     Dosage: APPLY TO AFFECTED AREAS 1-2X/DAY PRN
     Route: 061
  2. EUCRISA [Suspect]
     Active Substance: CRISABOROLE
     Indication: Rash
     Dosage: APPLY TWICE DAILY TO HANDS AS NEEDED AS DIRECTED BY PHYSICIAN
  3. EUCRISA [Suspect]
     Active Substance: CRISABOROLE
     Dosage: AAA ONE TO TWO TIMES DAILY AS NEEDED

REACTIONS (4)
  - Limb injury [Unknown]
  - Anxiety [Unknown]
  - Feeling abnormal [Unknown]
  - Off label use [Unknown]
